FAERS Safety Report 5048801-3 (Version None)
Quarter: 2006Q3

REPORT INFORMATION
  Report Type: 
  Country: None (occurrence: None)
  Receive Date: 20060705
  Receipt Date: 20060613
  Transmission Date: 20061208
  Serious: Yes (Hospitalization)
  Sender: FDA-Public Use
  Company Number: PL200606002998

PATIENT
  Age: 66 Year
  Sex: Female
  Weight: 86 kg

DRUGS (9)
  1. HUMULIN 70/30 [Suspect]
     Indication: DIABETES MELLITUS
     Dosage: 30 U, DAILY (1/D), SUBCUTANEOUS
     Route: 058
  2. ISOSORBIDE MONONITRATE [Concomitant]
  3. ACARD (ACETYLSALICYLIC ACID) [Concomitant]
  4. BISOCARD (BISOPROLOL) [Concomitant]
  5. NAPROXEN [Concomitant]
  6. AMLOPIN (AMLODIPINE BESILATE) [Concomitant]
  7. ENALAPRIL MALEATE [Concomitant]
  8. RUTAVIT (RUTOSIDE ) [Concomitant]
  9. TULIP (FLURBIPROFEN) [Concomitant]

REACTIONS (2)
  - ERYSIPELAS [None]
  - VARICOSE VEIN [None]
